FAERS Safety Report 9542158 (Version 4)
Quarter: 2013Q4

REPORT INFORMATION
  Report Type: Report from Study
  Country: BE (occurrence: BE)
  Receive Date: 20130923
  Receipt Date: 20131122
  Transmission Date: 20140711
  Serious: Yes (Hospitalization)
  Sender: FDA-Public Use
  Company Number: BE-JNJFOC-20130616541

PATIENT
  Age: 38 Year
  Sex: 0

DRUGS (7)
  1. REMICADE [Suspect]
     Indication: ANKYLOSING SPONDYLITIS
     Route: 042
  2. REMICADE [Suspect]
     Indication: ANKYLOSING SPONDYLITIS
     Route: 042
     Dates: start: 20130612
  3. REMICADE [Suspect]
     Indication: ANKYLOSING SPONDYLITIS
     Route: 042
     Dates: start: 20130529
  4. ARCOXIA [Concomitant]
     Route: 065
  5. ETORICOXIB [Concomitant]
     Route: 065
     Dates: start: 20120504
  6. CIPRALEX [Concomitant]
     Indication: DEPRESSION
     Route: 065
     Dates: start: 20120901
  7. DEANXIT [Concomitant]
     Indication: DEPRESSION
     Route: 065
     Dates: start: 20120901

REACTIONS (2)
  - Arthritis [Recovered/Resolved]
  - Dermatitis allergic [Recovered/Resolved]
